FAERS Safety Report 5925343-1 (Version None)
Quarter: 2008Q4

REPORT INFORMATION
  Report Type: 
  Country: None (occurrence: None)
  Receive Date: 20081020
  Receipt Date: 20081020
  Transmission Date: 20090506
  Serious: Yes (Other)
  Sender: FDA-Public Use
  Company Number: None

PATIENT
  Age: 35 Year
  Sex: Female
  Weight: 68.0396 kg

DRUGS (1)
  1. NAPROXEN [Suspect]
     Indication: ARTHRALGIA
     Dosage: 500MG 2 X'S DAILY PO
     Route: 048
     Dates: start: 20061029, end: 20061120

REACTIONS (4)
  - DYSPEPSIA [None]
  - GASTROINTESTINAL INFLAMMATION [None]
  - IRRITABLE BOWEL SYNDROME [None]
  - VOMITING [None]
